FAERS Safety Report 14777889 (Version 1)
Quarter: 2018Q2

REPORT INFORMATION
  Report Type: Spontaneous
  Country: FR (occurrence: FR)
  Receive Date: 20180419
  Receipt Date: 20180419
  Transmission Date: 20180711
  Serious: Yes (Other)
  Sender: FDA-Public Use
  Company Number: FR-MERCK KGAA-2046042

PATIENT
  Age: 70 Year
  Sex: Female
  Weight: 78 kg

DRUGS (3)
  1. NOVOTHYROX [Suspect]
     Active Substance: LEVOTHYROXINE SODIUM
     Route: 048
     Dates: start: 20170410
  2. NOVOTHYROX [Suspect]
     Active Substance: LEVOTHYROXINE SODIUM
     Route: 048
     Dates: start: 20170410
  3. NOVOTHYROX [Suspect]
     Active Substance: LEVOTHYROXINE SODIUM
     Indication: POST PROCEDURAL HYPOTHYROIDISM
     Route: 048
     Dates: start: 20170410

REACTIONS (11)
  - Asthenia [None]
  - Fatigue [Not Recovered/Not Resolved]
  - Loss of personal independence in daily activities [None]
  - Visual impairment [Not Recovered/Not Resolved]
  - Psychiatric symptom [None]
  - Headache [Not Recovered/Not Resolved]
  - Hypoacusis [Not Recovered/Not Resolved]
  - Insomnia [None]
  - Hypertension [None]
  - Malaise [Not Recovered/Not Resolved]
  - Mobility decreased [None]

NARRATIVE: CASE EVENT DATE: 201706
